FAERS Safety Report 17103484 (Version 1)
Quarter: 2019Q4

REPORT INFORMATION
  Report Type: Spontaneous
  Country: US (occurrence: US)
  Receive Date: 20191203
  Receipt Date: 20191203
  Transmission Date: 20200122
  Serious: No
  Sender: FDA-Public Use
  Company Number: US-LUPIN PHARMACEUTICALS INC.-2019-00625

PATIENT
  Sex: Female

DRUGS (1)
  1. LOSARTAN POTASSIUM TABLET USP 100 MG [Suspect]
     Active Substance: LOSARTAN POTASSIUM
     Indication: PRODUCT USED FOR UNKNOWN INDICATION
     Dosage: UNK
     Route: 065
     Dates: start: 20181225, end: 201901

REACTIONS (3)
  - Depression [Recovered/Resolved]
  - Crying [Recovered/Resolved]
  - Emotional disorder [Recovered/Resolved]
